FAERS Safety Report 9389510 (Version 2)
Quarter: 2013Q3

REPORT INFORMATION
  Report Type: Spontaneous
  Country: US (occurrence: US)
  Receive Date: 20130708
  Receipt Date: 20130904
  Transmission Date: 20140515
  Serious: No
  Sender: FDA-Public Use
  Company Number: US-AMGEN-USASP2013040278

PATIENT
  Age: 49 Year
  Sex: Male
  Weight: 113.38 kg

DRUGS (7)
  1. ENBREL [Suspect]
     Indication: PSORIATIC ARTHROPATHY
     Dosage: 50 MG, QWK
     Route: 058
     Dates: start: 20130321
  2. ENBREL [Suspect]
     Indication: PSORIASIS
  3. DIOVAN [Suspect]
     Indication: CARDIAC FAILURE CONGESTIVE
     Dosage: 40 MG, QD
     Route: 048
  4. LASIX /00032601/ [Suspect]
     Indication: CARDIAC FAILURE CONGESTIVE
     Dosage: 80 MG, QD
     Route: 048
  5. PREDNISONE [Suspect]
     Indication: GOUT
     Dosage: UNK
     Route: 048
  6. ULORIC [Suspect]
     Indication: GOUT
     Dosage: 40 MG, QD
     Route: 048
     Dates: start: 2013
  7. CLOBEX                             /00337102/ [Concomitant]
     Indication: PSORIASIS
     Dosage: UNK
     Route: 061
     Dates: start: 201201

REACTIONS (2)
  - Nausea [Recovered/Resolved]
  - Dizziness [Recovered/Resolved]
